FAERS Safety Report 10285180 (Version 7)
Quarter: 2015Q3

REPORT INFORMATION
  Report Type: Report from Study
  Country: US (occurrence: US)
  Receive Date: 20140708
  Receipt Date: 20150714
  Transmission Date: 20151125
  Serious: Yes (Hospitalization, Other)
  Sender: FDA-Public Use
  Company Number: US-SA-2014SA008009

PATIENT
  Age: 61 Year
  Sex: Male
  Weight: 76.2 kg

DRUGS (7)
  1. NORTRIPTYLINE [Concomitant]
     Active Substance: NORTRIPTYLINE
     Indication: PROPHYLAXIS
     Dates: start: 20141009
  2. AUBAGIO [Suspect]
     Active Substance: TERIFLUNOMIDE
     Indication: MULTIPLE SCLEROSIS
     Route: 048
     Dates: start: 20131223
  3. AUBAGIO [Suspect]
     Active Substance: TERIFLUNOMIDE
     Indication: MULTIPLE SCLEROSIS
     Route: 048
     Dates: start: 201401
  4. AUBAGIO [Suspect]
     Active Substance: TERIFLUNOMIDE
     Indication: MULTIPLE SCLEROSIS
     Route: 048
  5. IBUPROFEN. [Concomitant]
     Active Substance: IBUPROFEN
  6. AUBAGIO [Suspect]
     Active Substance: TERIFLUNOMIDE
     Indication: MULTIPLE SCLEROSIS
     Route: 048
     Dates: start: 20141203, end: 20141210
  7. PREVACID [Concomitant]
     Active Substance: LANSOPRAZOLE
     Indication: DYSPEPSIA
     Dates: start: 20120430

REACTIONS (20)
  - Chest discomfort [Unknown]
  - Alopecia [Unknown]
  - Rash [Recovered/Resolved]
  - Memory impairment [Unknown]
  - Hypoaesthesia [Unknown]
  - Fall [Unknown]
  - Staphylococcal infection [Unknown]
  - Joint injury [Unknown]
  - Multiple sclerosis relapse [Unknown]
  - Foot deformity [Unknown]
  - White blood cell count increased [Unknown]
  - Blood pressure increased [Unknown]
  - Flushing [Recovered/Resolved]
  - Unevaluable event [Unknown]
  - Seizure [Unknown]
  - Hypersensitivity [Recovered/Resolved]
  - Paralysis [Unknown]
  - Chest pain [Unknown]
  - Headache [Recovered/Resolved]
  - Nausea [Recovered/Resolved]

NARRATIVE: CASE EVENT DATE: 20131226
